FAERS Safety Report 20113513 (Version 1)
Quarter: 2021Q4

REPORT INFORMATION
  Report Type: Spontaneous
  Country: US (occurrence: US)
  Receive Date: 20211125
  Receipt Date: 20211125
  Transmission Date: 20220303
  Serious: Yes (Other)
  Sender: FDA-Public Use
  Company Number: US-GLAXOSMITHKLINE-US2021GSK242801

PATIENT
  Sex: Female

DRUGS (4)
  1. ZANTAC [Suspect]
     Active Substance: RANITIDINE HYDROCHLORIDE
     Indication: Ulcer
     Dosage: 150 MG, QD
     Route: 065
     Dates: start: 201701, end: 201912
  2. ZANTAC [Suspect]
     Active Substance: RANITIDINE HYDROCHLORIDE
     Indication: Ulcer
     Dosage: 150 MG, QD
     Route: 065
     Dates: start: 201701, end: 201912
  3. ZANTAC [Suspect]
     Active Substance: RANITIDINE HYDROCHLORIDE
     Indication: Ulcer
     Dosage: 150 MG, QD
     Route: 065
     Dates: start: 201701, end: 201912
  4. RANITIDINE [Suspect]
     Active Substance: RANITIDINE
     Indication: Ulcer
     Dosage: 150 MG, QD
     Route: 065
     Dates: start: 201701, end: 201912

REACTIONS (1)
  - Prostate cancer [Unknown]
